FAERS Safety Report 5448567-9 (Version None)
Quarter: 2007Q3

REPORT INFORMATION
  Report Type: 
  Country: None (occurrence: None)
  Receive Date: 20070911
  Receipt Date: 20070905
  Transmission Date: 20080115
  Serious: Yes (Other)
  Sender: FDA-Public Use
  Company Number: US-ELI_LILLY_AND_COMPANY-US200709000775

PATIENT
  Age: 73 Year
  Sex: Male

DRUGS (2)
  1. HUMULIN N [Suspect]
     Indication: DIABETES MELLITUS
     Dates: start: 19710101, end: 20040101
  2. PLAVIX [Concomitant]

REACTIONS (3)
  - BLINDNESS [None]
  - CORONARY ARTERY BYPASS [None]
  - LEG AMPUTATION [None]
